FAERS Safety Report 25453199 (Version 1)
Quarter: 2025Q2

REPORT INFORMATION
  Report Type: Spontaneous
  Country: US (occurrence: US)
  Receive Date: 20250618
  Receipt Date: 20250618
  Transmission Date: 20250716
  Serious: Yes (Hospitalization)
  Sender: SANOFI AVENTIS
  Company Number: US-SA-2025SA171678

PATIENT
  Age: 52 Year
  Sex: Female

DRUGS (1)
  1. DUPIXENT [Suspect]
     Active Substance: DUPILUMAB
     Indication: Idiopathic urticaria
     Route: 058

REACTIONS (6)
  - Heart rate increased [Unknown]
  - Blood pressure increased [Unknown]
  - Chest discomfort [Unknown]
  - Throat irritation [Unknown]
  - Dysphagia [Unknown]
  - Product use in unapproved indication [Unknown]
